FAERS Safety Report 5043772-8 (Version None)
Quarter: 2006Q2

REPORT INFORMATION
  Report Type: 
  Country: None (occurrence: None)
  Receive Date: 20060628
  Receipt Date: 20060621
  Transmission Date: 20061013
  Serious: Yes (Hospitalization)
  Sender: FDA-Public Use
  Company Number: 163-C5013-06030099

PATIENT
  Age: 82 Year
  Sex: Female
  Weight: 43.1 kg

DRUGS (13)
  1. REVLIMID [Suspect]
     Indication: MULTIPLE MYELOMA
     Dosage: 25 MG, QD X 21D OF 28D CYCLE, ORAL
     Route: 048
     Dates: start: 20060208, end: 20060301
  2. DEXAMETHASONE [Suspect]
     Indication: MULTIPLE MYELOMA
     Dosage: ORAL
     Route: 048
     Dates: start: 20060208
  3. FLONASE [Concomitant]
  4. FOLIC ACID [Concomitant]
  5. HYDROCHLOROTHIAZIDE [Concomitant]
  6. SYNTHROID [Concomitant]
  7. TEMAZEPAM [Concomitant]
  8. MIRAPEX [Concomitant]
  9. DARVOCET [Concomitant]
  10. MULTIVITAMIN [Concomitant]
  11. CALCIUM GLUCONATE [Concomitant]
  12. ZOMETA [Concomitant]
  13. RANITIDINE [Concomitant]

REACTIONS (27)
  - ABSCESS [None]
  - ARTHRITIS [None]
  - BACTERAEMIA [None]
  - BETA HAEMOLYTIC STREPTOCOCCAL INFECTION [None]
  - BLOOD CALCIUM DECREASED [None]
  - BLOOD GLUCOSE INCREASED [None]
  - BLOOD PRESSURE DECREASED [None]
  - CONDITION AGGRAVATED [None]
  - DEHYDRATION [None]
  - DRUG INEFFECTIVE [None]
  - HAEMOGLOBIN DECREASED [None]
  - IMMOBILE [None]
  - JOINT EFFUSION [None]
  - LETHARGY [None]
  - NAUSEA [None]
  - ORAL CANDIDIASIS [None]
  - ORAL INTAKE REDUCED [None]
  - PLATELET COUNT DECREASED [None]
  - PULMONARY CONGESTION [None]
  - RED BLOOD CELL COUNT DECREASED [None]
  - RENAL FAILURE ACUTE [None]
  - SINUSITIS [None]
  - STAPHYLOCOCCAL INFECTION [None]
  - STREPTOCOCCAL BACTERAEMIA [None]
  - URINARY TRACT INFECTION ENTEROCOCCAL [None]
  - VISUAL DISTURBANCE [None]
  - VITRITIS [None]
